FAERS Safety Report 7399269-3 (Version None)
Quarter: 2011Q1

REPORT INFORMATION
  Report Type: 
  Country: None (occurrence: None)
  Receive Date: 20110328
  Receipt Date: 20110315
  Transmission Date: 20110831
  Serious: Yes (Hospitalization)
  Sender: FDA-Public Use
  Company Number: DSJ-2011-05475

PATIENT
  Age: 61 Year
  Sex: Male

DRUGS (4)
  1. BENICAR HCT [Suspect]
     Indication: HYPERTENSION
     Dosage: 40/12.5 MG (1 IN 1 D), PER ORAL
     Route: 048
     Dates: start: 20080101
  2. METFORMIN HCL [Concomitant]
  3. CLONIDINE [Concomitant]
  4. MANIDIPINE (MANIDIPINE) [Concomitant]

REACTIONS (2)
  - HYPOTENSION [None]
  - OBESITY SURGERY [None]
